FAERS Safety Report 22248547 (Version 1)
Quarter: 2023Q2

REPORT INFORMATION
  Report Type: Report from Study
  Country: CA (occurrence: None)
  Receive Date: 20230425
  Receipt Date: 20230425
  Transmission Date: 20230721
  Serious: Yes (Death, Hospitalization, Other)
  Sender: FDA-Public Use
  Company Number: 2023A054766

PATIENT
  Age: 958 Month
  Sex: Male
  Weight: 70 kg

DRUGS (6)
  1. TAGRISSO [Suspect]
     Active Substance: OSIMERTINIB
     Indication: Non-small cell lung cancer
     Route: 048
     Dates: start: 20230119, end: 20230406
  2. TAGRISSO [Suspect]
     Active Substance: OSIMERTINIB
     Indication: Non-small cell lung cancer
     Route: 048
     Dates: start: 20221215, end: 20230214
  3. PIPERACILLIN SODIUM\TAZOBACTAM SODIUM [Concomitant]
     Active Substance: PIPERACILLIN SODIUM\TAZOBACTAM SODIUM
  4. ATENOLOL [Concomitant]
     Active Substance: ATENOLOL
  5. DUTESTERIDE [Concomitant]
  6. LEVOTHYROXINE [Concomitant]
     Active Substance: LEVOTHYROXINE

REACTIONS (8)
  - Hyponatraemia [Unknown]
  - Atrial fibrillation [Unknown]
  - Pneumonitis [Recovering/Resolving]
  - Peritonitis [Fatal]
  - Pneumonia [Unknown]
  - Intestinal perforation [Unknown]
  - Small intestinal obstruction [Unknown]
  - Medication error [Unknown]

NARRATIVE: CASE EVENT DATE: 20230201
